FAERS Safety Report 5670125-1 (Version None)
Quarter: 2008Q1

REPORT INFORMATION
  Report Type: 
  Country: None (occurrence: None)
  Receive Date: 20080312
  Receipt Date: 20080303
  Transmission Date: 20080703
  Serious: Yes (Hospitalization)
  Sender: FDA-Public Use
  Company Number: 2008-173044-NL

PATIENT
  Age: 56 Year
  Sex: Female

DRUGS (5)
  1. DANAPAROID SODIUM [Suspect]
     Indication: ANTICOAGULANT THERAPY
     Dosage: 200 ANTI_XA Q1HR, INTRAVENOUS (NOS)
     Route: 042
     Dates: start: 20070921, end: 20070921
  2. OLMESARTAN MEDOXOMIL [Concomitant]
  3. LEVOTHYROXINE SODIUM [Concomitant]
  4. HEPARIN [Concomitant]
  5. FONDAPARINUX [Concomitant]

REACTIONS (7)
  - CARDIOVASCULAR DISORDER [None]
  - DRUG PHYSIOLOGIC INCOMPATIBILITY [None]
  - DYSSTASIA [None]
  - HAEMANGIOMA OF LIVER [None]
  - HYPOTENSION [None]
  - NAUSEA [None]
  - SOMNOLENCE [None]
